FAERS Safety Report 6411807-3 (Version None)
Quarter: 2009Q4

REPORT INFORMATION
  Report Type: 
  Country: None (occurrence: None)
  Receive Date: 20091023
  Receipt Date: 20091021
  Transmission Date: 20100525
  Serious: Yes (Life-Threatening, Other)
  Sender: FDA-Public Use
  Company Number: IN-BRISTOL-MYERS SQUIBB COMPANY-14701742

PATIENT
  Age: 59 Year
  Sex: Female

DRUGS (1)
  1. IXEMPRA KIT [Suspect]
     Indication: BREAST CANCER METASTATIC
     Dosage: RECEIVED 2ND CYCLE ON 13OCT09
     Route: 042
     Dates: start: 20090608

REACTIONS (4)
  - CARDIAC ARREST [None]
  - CONVULSION [None]
  - LYMPHOEDEMA [None]
  - PAIN IN EXTREMITY [None]
